FAERS Safety Report 10077519 (Version 1)
Quarter: 2014Q2

REPORT INFORMATION
  Report Type: Spontaneous
  Country: US (occurrence: US)
  Receive Date: 20140414
  Receipt Date: 20140414
  Transmission Date: 20141212
  Serious: No
  Sender: FDA-Public Use
  Company Number: US-BANPHARM-20131714

PATIENT
  Sex: Male

DRUGS (2)
  1. NAPROXEN SODIUM 220 MG [Suspect]
     Indication: HEADACHE
     Dosage: 220 MG, ONCE,
     Route: 048
     Dates: start: 20130903, end: 20130903
  2. NAPROXEN SODIUM 220 MG [Suspect]
     Indication: HEADACHE
     Dosage: PRN,
     Route: 048

REACTIONS (4)
  - Pharyngitis [Recovered/Resolved]
  - Diarrhoea [Recovered/Resolved]
  - Rash [Recovered/Resolved]
  - Expired product administered [Unknown]
